FAERS Safety Report 16597062 (Version 1)
Quarter: 2019Q3

REPORT INFORMATION
  Report Type: Spontaneous
  Country: US (occurrence: US)
  Receive Date: 20190719
  Receipt Date: 20190719
  Transmission Date: 20191004
  Serious: Yes (Hospitalization)
  Sender: FDA-Public Use
  Company Number: US-TELIGENT, INC-20190700026

PATIENT
  Sex: Female

DRUGS (8)
  1. SERTRALINE [Concomitant]
     Active Substance: SERTRALINE HYDROCHLORIDE
     Dosage: UNK
  2. MIRABEGRON [Concomitant]
     Active Substance: MIRABEGRON
     Dosage: UNK
  3. PHENTERMINE. [Concomitant]
     Active Substance: PHENTERMINE
     Dosage: UNK
  4. TOPIRAMATE. [Concomitant]
     Active Substance: TOPIRAMATE
     Dosage: UNK
  5. LISINOPRIL. [Concomitant]
     Active Substance: LISINOPRIL
     Dosage: UNK
  6. ZANTAC [Suspect]
     Active Substance: RANITIDINE HYDROCHLORIDE
     Dosage: UNKNOWN DOSE
  7. AMLODIPINE BESILATE [Suspect]
     Active Substance: AMLODIPINE BESYLATE
     Dosage: UNK
  8. POTASSIUM [Concomitant]
     Active Substance: POTASSIUM

REACTIONS (2)
  - Weight decreased [Recovered/Resolved]
  - Trigger finger [Not Recovered/Not Resolved]
